FAERS Safety Report 7232954-2 (Version None)
Quarter: 2011Q1

REPORT INFORMATION
  Report Type: 
  Country: None (occurrence: None)
  Receive Date: 20110119
  Receipt Date: 20110106
  Transmission Date: 20110831
  Serious: Yes (Other)
  Sender: FDA-Public Use
  Company Number: US-ELI_LILLY_AND_COMPANY-US201101001756

PATIENT
  Age: 70 Year
  Sex: Male

DRUGS (7)
  1. HYDROCHLOROTHIAZIDE [Concomitant]
  2. LOVENOX [Concomitant]
     Dosage: 90 MG, UNK
  3. ASPIRIN [Concomitant]
  4. PEPCID [Concomitant]
     Dosage: 20 MG, UNK
  5. EFFIENT [Suspect]
     Dosage: 10 MG, UNK
     Dates: end: 20100921
  6. LASIX [Concomitant]
     Dosage: 20 MG, UNK
  7. COZAAR [Concomitant]

REACTIONS (2)
  - OPERATIVE HAEMORRHAGE [None]
  - SURGERY [None]
